FAERS Safety Report 16730771 (Version 1)
Quarter: 2019Q3

REPORT INFORMATION
  Report Type: Spontaneous
  Country: US (occurrence: US)
  Receive Date: 20190707
  Receipt Date: 20190707
  Transmission Date: 20191005
  Serious: Yes (Hospitalization)
  Sender: FDA-Public Use
  Company Number: None

PATIENT
  Age: 57 Year
  Sex: Female
  Weight: 106 kg

DRUGS (13)
  1. ACETAMINOPHEN. [Concomitant]
     Active Substance: ACETAMINOPHEN
  2. LITHIUM. [Concomitant]
     Active Substance: LITHIUM
  3. PANTOPRAZOLE [Concomitant]
     Active Substance: PANTOPRAZOLE
  4. GLICLAZIDE [Concomitant]
     Active Substance: GLICLAZIDE
  5. GABAPENTIN. [Concomitant]
     Active Substance: GABAPENTIN
  6. RESTORIL [Concomitant]
     Active Substance: TEMAZEPAM
  7. ANASTRAZOLE [Concomitant]
     Active Substance: ANASTROZOLE
  8. ASPIRIN. [Suspect]
     Active Substance: ASPIRIN
     Dates: end: 20190704
  9. ZOPICLONE [Suspect]
     Active Substance: ZOPICLONE
  10. JANUVIA [Concomitant]
     Active Substance: SITAGLIPTIN PHOSPHATE
  11. LORAZEPAM. [Concomitant]
     Active Substance: LORAZEPAM
  12. METFORMIN [Concomitant]
     Active Substance: METFORMIN HYDROCHLORIDE
  13. SYNTHROID [Concomitant]
     Active Substance: LEVOTHYROXINE SODIUM

REACTIONS (1)
  - Depression [None]

NARRATIVE: CASE EVENT DATE: 20190702
